FAERS Safety Report 22358889 (Version 1)
Quarter: 2023Q2

REPORT INFORMATION
  Report Type: Spontaneous
  Country: FR (occurrence: FR)
  Receive Date: 20230524
  Receipt Date: 20230524
  Transmission Date: 20230721
  Serious: Yes (Hospitalization, Disabling, Other)
  Sender: FDA-Public Use
  Company Number: FR-ORGANON-O2305FRA001286

PATIENT
  Sex: Male
  Weight: 60 kg

DRUGS (3)
  1. BETAMETHASONE DIPROPIONATE\BETAMETHASONE SODIUM PHOSPHATE [Suspect]
     Active Substance: BETAMETHASONE DIPROPIONATE\BETAMETHASONE SODIUM PHOSPHATE
     Indication: Arthralgia
     Dosage: 1 VIAL, INFILTRATION
     Route: 014
     Dates: start: 20210208
  2. VISIPAQUE [Concomitant]
     Active Substance: IODIXANOL
     Indication: Scan with contrast
     Dosage: 1 VIAL OF 20 ML (VISIPAQUE 320)
     Route: 014
     Dates: start: 20210208
  3. XYLOCAINE [Concomitant]
     Active Substance: LIDOCAINE HYDROCHLORIDE
     Dosage: 2%, 20 MG/ML, ONE VIAL OF 20 ML
     Route: 014
     Dates: start: 20210208

REACTIONS (6)
  - Type 1 diabetes mellitus [Recovering/Resolving]
  - Erectile dysfunction [Unknown]
  - Pain [Unknown]
  - Anxiety [Unknown]
  - Emotional distress [Unknown]
  - General physical condition abnormal [Unknown]

NARRATIVE: CASE EVENT DATE: 20210101
